FAERS Safety Report 9975310 (Version 1)
Quarter: 2014Q1

REPORT INFORMATION
  Report Type: Report from Study
  Country: US (occurrence: US)
  Receive Date: 20140306
  Receipt Date: 20140306
  Transmission Date: 20141002
  Serious: No
  Sender: FDA-Public Use
  Company Number: US-ABBVIE-13P-163-1159643-00

PATIENT
  Age: 53 Year
  Sex: Female

DRUGS (8)
  1. HUMIRA [Suspect]
     Indication: PSORIASIS
     Dates: start: 20130828
  2. OXYGEN [Concomitant]
     Indication: PULMONARY FIBROSIS
     Dosage: 2 L CONTINUOUSLY
  3. PREDNISONE [Concomitant]
     Indication: PULMONARY FIBROSIS
     Dosage: 5 MG DAILY
  4. ADVAIR [Concomitant]
     Indication: PULMONARY FIBROSIS
     Dosage: 550 MG 1 PUFF DAILY
  5. HYDROCHLOROTHIAZIDE [Concomitant]
     Indication: HYPERTENSION
     Dosage: 25 MG DAILY
  6. FOSAMAX [Concomitant]
     Indication: OSTEOPOROSIS
  7. POTASSIUM [Concomitant]
     Indication: BLOOD POTASSIUM DECREASED
  8. VITAMIN D [Concomitant]
     Indication: VITAMIN D DECREASED
     Dosage: DAILY

REACTIONS (1)
  - Drug ineffective [Not Recovered/Not Resolved]
